FAERS Safety Report 13621477 (Version 1)
Quarter: 2017Q2

REPORT INFORMATION
  Report Type: Spontaneous
  Country: US (occurrence: US)
  Receive Date: 20170607
  Receipt Date: 20170607
  Transmission Date: 20170830
  Serious: Yes (Other)
  Sender: FDA-Public Use
  Company Number: None

PATIENT
  Age: 73 Year
  Sex: Female
  Weight: 57.61 kg

DRUGS (3)
  1. VITA D3 [Concomitant]
  2. ASCLERA [Suspect]
     Active Substance: POLIDOCANOL
     Indication: SPIDER VEIN
     Dosage: DATE PERSON STARTED  12-21-17 ?DATE PERSON STOPPED 12-21-17
  3. CENTRUM VITAMINS LIQUID [Concomitant]
     Active Substance: VITAMINS

REACTIONS (1)
  - Skin swelling [None]
